FAERS Safety Report 7703386-5 (Version None)
Quarter: 2011Q3

REPORT INFORMATION
  Report Type: 
  Country: None (occurrence: None)
  Receive Date: 20110823
  Receipt Date: 20110809
  Transmission Date: 20111222
  Serious: No
  Sender: FDA-Public Use
  Company Number: US-B.I. PHARMACEUTICALS,INC./RIDGEFIELD-2011-BP-15468BP

PATIENT
  Age: 91 Year
  Sex: Female
  Weight: 67.13 kg

DRUGS (7)
  1. LANOXIN [Concomitant]
     Dosage: 0.25 MG
     Route: 048
  2. DEXAMETHASONE [Concomitant]
  3. HYDROCODONE BITARTRATE AND ACETAMINOPHEN [Concomitant]
     Dates: start: 20110508
  4. LISINOPRIL [Concomitant]
     Dosage: 10 MG
     Route: 048
  5. ULTRAM [Concomitant]
     Route: 048
  6. PRADAXA [Suspect]
     Indication: ATRIAL FIBRILLATION
     Dosage: 300 MG
     Route: 048
     Dates: start: 20110415, end: 20110613
  7. POTASSIUM CHLORIDE [Concomitant]
     Dosage: 40 MEQ
     Route: 048

REACTIONS (3)
  - HAEMATOCHEZIA [None]
  - FATIGUE [None]
  - MELAENA [None]
